FAERS Safety Report 18259963 (Version 4)
Quarter: 2020Q4

REPORT INFORMATION
  Report Type: Spontaneous
  Country: US (occurrence: US)
  Receive Date: 20200912
  Receipt Date: 20201102
  Transmission Date: 20210113
  Serious: Yes (Other)
  Sender: FDA-Public Use
  Company Number: US-009507513-2009USA001625

PATIENT
  Age: 19 Year
  Sex: Female
  Weight: 72.56 kg

DRUGS (3)
  1. TOPIRAMATE. [Concomitant]
     Active Substance: TOPIRAMATE
     Dosage: UNK
     Route: 048
  2. NEXPLANON [Suspect]
     Active Substance: ETONOGESTREL
     Indication: CONTRACEPTION
     Dosage: 1 IMPLANT (68 MG) ONE TIME
     Route: 059
     Dates: start: 20200423
  3. ZOLMITRIPTAN. [Concomitant]
     Active Substance: ZOLMITRIPTAN
     Dosage: UNK
     Route: 048

REACTIONS (2)
  - Vaginal haemorrhage [Unknown]
  - Hepatic adenoma [Unknown]

NARRATIVE: CASE EVENT DATE: 2020
